FAERS Safety Report 21504715 (Version 1)
Quarter: 2022Q4

REPORT INFORMATION
  Report Type: Spontaneous
  Country: CN (occurrence: CN)
  Receive Date: 20221025
  Receipt Date: 20221025
  Transmission Date: 20230112
  Serious: Yes (Hospitalization, Other)
  Sender: FDA-Public Use
  Company Number: CN-009507513-2210CHN008501

PATIENT
  Age: 67 Year
  Sex: Female

DRUGS (2)
  1. KEYTRUDA [Suspect]
     Active Substance: PEMBROLIZUMAB
     Dosage: 1ST CYCLE
     Dates: start: 2022, end: 2022
  2. KEYTRUDA [Suspect]
     Active Substance: PEMBROLIZUMAB
     Dosage: 2ND CYCLE
     Dates: start: 202207, end: 202207

REACTIONS (8)
  - Coma [Not Recovered/Not Resolved]
  - Pleural effusion [Unknown]
  - Cancer surgery [Unknown]
  - Pneumonia [Unknown]
  - Immune-mediated encephalitis [Unknown]
  - Hypopituitarism [Unknown]
  - Hypothyroidism [Unknown]
  - Product use issue [Unknown]

NARRATIVE: CASE EVENT DATE: 20220701
